APPROVED DRUG PRODUCT: PATHOCIL
Active Ingredient: DICLOXACILLIN SODIUM
Strength: EQ 500MG BASE **Federal Register determination that product was not discontinued or withdrawn for safety or effectiveness reasons**
Dosage Form/Route: CAPSULE;ORAL
Application: N050011 | Product #003
Applicant: WYETH AYERST LABORATORIES
Approved: Mar 28, 1983 | RLD: Yes | RS: No | Type: DISCN